FAERS Safety Report 25370827 (Version 1)
Quarter: 2025Q2

REPORT INFORMATION
  Report Type: Spontaneous
  Country: US (occurrence: US)
  Receive Date: 20250528
  Receipt Date: 20250528
  Transmission Date: 20250717
  Serious: No
  Sender: ELI LILLY AND COMPANY
  Company Number: US-ELI_LILLY_AND_COMPANY-US202505024149

PATIENT
  Age: 84 Year
  Sex: Male

DRUGS (3)
  1. TRULICITY [Suspect]
     Active Substance: DULAGLUTIDE
     Indication: Diabetes mellitus inadequate control
     Route: 058
     Dates: start: 202408
  2. TRULICITY [Suspect]
     Active Substance: DULAGLUTIDE
     Indication: Diabetes mellitus inadequate control
     Route: 058
     Dates: start: 202410
  3. NOVOLOG [Concomitant]
     Active Substance: INSULIN ASPART
     Indication: Diabetes mellitus inadequate control
     Route: 065

REACTIONS (5)
  - Blood glucose increased [Unknown]
  - Weight decreased [Unknown]
  - Injection site pain [Unknown]
  - Off label use [Unknown]
  - Drug effect less than expected [Unknown]
